FAERS Safety Report 24606406 (Version 4)
Quarter: 2024Q4

REPORT INFORMATION
  Report Type: Spontaneous
  Country: JP (occurrence: JP)
  Receive Date: 20241112
  Receipt Date: 20241218
  Transmission Date: 20250114
  Serious: Yes (Other)
  Sender: GLAXOSMITHKLINE
  Company Number: JP-GSKNCCC-Case-02106359_AE-89939

PATIENT

DRUGS (2)
  1. FLUTICASONE PROPIONATE [Suspect]
     Active Substance: FLUTICASONE PROPIONATE
     Indication: Asthma
     Dosage: UNK UNK, BID, 1 INHALATION/DOSE
     Dates: start: 202309
  2. SERETIDE [Suspect]
     Active Substance: FLUTICASONE PROPIONATE\SALMETEROL XINAFOATE
     Indication: Asthma
     Dosage: UNK, BID, 1 INHALATION/DOSE
     Dates: start: 201810

REACTIONS (1)
  - Tongue neoplasm malignant stage unspecified [Recovered/Resolved]
